FAERS Safety Report 13001300 (Version 1)
Quarter: 2016Q4

REPORT INFORMATION
  Report Type: Spontaneous
  Country: US (occurrence: US)
  Receive Date: 20161206
  Receipt Date: 20161206
  Transmission Date: 20170207
  Serious: No
  Sender: FDA-Public Use
  Company Number: US-PFIZER INC-2016565328

PATIENT
  Age: 46 Year
  Sex: Male
  Weight: 86 kg

DRUGS (3)
  1. GABAPENTIN. [Suspect]
     Active Substance: GABAPENTIN
     Indication: NEURALGIA
     Dosage: 400 MG, 3X/DAY
     Route: 048
     Dates: start: 20160909, end: 20161201
  2. TAMSULOSIN [Concomitant]
     Active Substance: TAMSULOSIN
     Indication: ANAL INCONTINENCE
     Dosage: 0.4 MG, 1X/DAY, AT BEDTIME
     Dates: start: 20160909
  3. CELEBREX [Concomitant]
     Active Substance: CELECOXIB
     Dosage: 100 MG, 2X/DAY
     Route: 048
     Dates: start: 20160909

REACTIONS (2)
  - Drug ineffective for unapproved indication [Unknown]
  - Abdominal pain upper [Unknown]
